FAERS Safety Report 4506996-1 (Version None)
Quarter: 2004Q4

REPORT INFORMATION
  Report Type: 
  Country: None (occurrence: None)
  Receive Date: 20041117
  Receipt Date: 20041108
  Transmission Date: 20050328
  Serious: Yes (Hospitalization)
  Sender: FDA-Public Use
  Company Number: 2004PK01915

PATIENT
  Age: 18 Year
  Sex: Female

DRUGS (3)
  1. BUDESONIDE [Suspect]
     Indication: CROHN'S DISEASE
     Dosage: 3 MG TID PO
     Route: 048
     Dates: start: 19950125, end: 19950201
  2. MESALAMINE [Concomitant]
  3. PREDNSOLONE [Concomitant]

REACTIONS (8)
  - CROHN'S DISEASE [None]
  - DISEASE RECURRENCE [None]
  - FATIGUE [None]
  - HYPERTROPHY [None]
  - MARKEDLY REDUCED DIETARY INTAKE [None]
  - ODYNOPHAGIA [None]
  - OESOPHAGITIS ULCERATIVE [None]
  - VOMITING [None]
